FAERS Safety Report 7530605-0 (Version None)
Quarter: 2011Q2

REPORT INFORMATION
  Report Type: 
  Country: None (occurrence: None)
  Receive Date: 20110607
  Receipt Date: 20110523
  Transmission Date: 20111010
  Serious: Yes (Other)
  Sender: FDA-Public Use
  Company Number: US-BAYER-2010-002121

PATIENT
  Age: 30 Year
  Sex: Female

DRUGS (8)
  1. YAZ [Suspect]
     Indication: PREMENSTRUAL SYNDROME
  2. CLARITIN [Concomitant]
  3. NAPROSYN [Concomitant]
     Dosage: UNK
  4. ALBUTEROL SULFATE AUTOHALER [Concomitant]
     Dosage: 2 PUFF(S), QID
     Route: 055
  5. LOESTRIN FE 1/20 [Concomitant]
     Dosage: UNK
     Dates: start: 20090731
  6. YAZ [Suspect]
     Indication: CONTRACEPTION
     Dosage: UNK
     Route: 048
     Dates: start: 20090601, end: 20090701
  7. DEPO-PROVERA [Concomitant]
     Dosage: UNK
     Dates: start: 20090301, end: 20090601
  8. VERAMYST [Concomitant]

REACTIONS (1)
  - DEEP VEIN THROMBOSIS [None]
